FAERS Safety Report 9366817 (Version 2)
Quarter: 2013Q3

REPORT INFORMATION
  Report Type: Spontaneous
  Country: FR (occurrence: FR)
  Receive Date: 20130625
  Receipt Date: 20130816
  Transmission Date: 20140515
  Serious: Yes (Hospitalization)
  Sender: FDA-Public Use
  Company Number: FR-TEVA-415016ISR

PATIENT
  Age: 79 Year
  Sex: Male

DRUGS (10)
  1. FUROSEMIDE TEVA? 40 MG [Suspect]
     Dosage: 1 DOSAGE FORMS DAILY; SCORED TABLET
     Route: 048
     Dates: start: 20130523, end: 20130611
  2. NEBIVOLOL [Concomitant]
  3. FLECAINE [Concomitant]
  4. BISOPROLOL TEVA 10MG [Concomitant]
  5. CORDARONE? [Concomitant]
     Route: 048
     Dates: start: 20130522
  6. ATORVASTATIN [Concomitant]
     Route: 048
  7. GLIMEPIRIDE TEVA 1MG [Concomitant]
  8. ELIGARD [Concomitant]
  9. EXFORGE [Concomitant]
  10. PREVISCAN [Concomitant]

REACTIONS (6)
  - Somnolence [Recovered/Resolved]
  - Arrhythmia [Unknown]
  - Urinary tract disorder [Unknown]
  - Abdominal abscess [Recovering/Resolving]
  - Fatigue [Recovered/Resolved]
  - Dysuria [Unknown]
